FAERS Safety Report 8120386-4 (Version None)
Quarter: 2012Q1

REPORT INFORMATION
  Report Type: 
  Country: None (occurrence: None)
  Receive Date: 20120207
  Receipt Date: 20120130
  Transmission Date: 20120608
  Serious: Yes (Hospitalization)
  Sender: FDA-Public Use
  Company Number: JP-GLAXOSMITHKLINE-B0779107A

PATIENT
  Age: 13 Year
  Sex: Male

DRUGS (3)
  1. RELENZA [Suspect]
     Indication: INFLUENZA
     Dosage: 20MG PER DAY
     Route: 055
     Dates: start: 20120123, end: 20120127
  2. ACETAMINOPHEN [Concomitant]
     Route: 065
  3. TAMIFLU [Concomitant]
     Indication: INFLUENZA
     Route: 065
     Dates: start: 20120101

REACTIONS (2)
  - MENTAL IMPAIRMENT [None]
  - UNRESPONSIVE TO STIMULI [None]
